FAERS Safety Report 5734422-3 (Version None)
Quarter: 2008Q2

REPORT INFORMATION
  Report Type: 
  Country: None (occurrence: None)
  Receive Date: 20080512
  Receipt Date: 20071106
  Transmission Date: 20081010
  Serious: No
  Sender: FDA-Public Use
  Company Number: A0691740A

PATIENT
  Age: 47 Year
  Sex: Female

DRUGS (2)
  1. NABUMETONE [Suspect]
     Indication: RHEUMATOID ARTHRITIS
     Dosage: 750MG TWICE PER DAY
     Route: 048
     Dates: start: 20060101
  2. METHOTREXATE [Concomitant]

REACTIONS (1)
  - DRUG INEFFECTIVE [None]
